FAERS Safety Report 7700578-6 (Version None)
Quarter: 2011Q3

REPORT INFORMATION
  Report Type: 
  Country: None (occurrence: None)
  Receive Date: 20110822
  Receipt Date: 20110815
  Transmission Date: 20111222
  Serious: Yes (Other)
  Sender: FDA-Public Use
  Company Number: US-AMGEN-USASP2011041536

PATIENT
  Age: 88 Year
  Sex: Male

DRUGS (1)
  1. NPLATE [Suspect]
     Indication: IDIOPATHIC THROMBOCYTOPENIC PURPURA
     Dates: start: 20110211

REACTIONS (4)
  - FALL [None]
  - THROMBOCYTOPENIA [None]
  - JOINT INJURY [None]
  - CONTUSION [None]
